FAERS Safety Report 9393214 (Version 5)
Quarter: 2013Q4

REPORT INFORMATION
  Report Type: Report from Study
  Country: RU (occurrence: RU)
  Receive Date: 20130710
  Receipt Date: 20131216
  Transmission Date: 20140711
  Serious: Yes (Hospitalization)
  Sender: FDA-Public Use
  Company Number: RU-FRI-1000045635

PATIENT
  Age: 59 Year
  Sex: Male
  Weight: 50 kg

DRUGS (3)
  1. VENTOLIN [Concomitant]
     Indication: CHRONIC OBSTRUCTIVE PULMONARY DISEASE
     Route: 055
     Dates: start: 20130404, end: 20130704
  2. ADVAIR [Concomitant]
     Indication: CHRONIC OBSTRUCTIVE PULMONARY DISEASE
     Dosage: 500/100 MCG
     Route: 055
     Dates: start: 20130404, end: 20130704
  3. ROFLUMILAST [Suspect]
     Indication: CHRONIC OBSTRUCTIVE PULMONARY DISEASE
     Dosage: 500 MCG
     Route: 048
     Dates: start: 20130418, end: 20130704

REACTIONS (1)
  - Pneumothorax [Recovered/Resolved]
